FAERS Safety Report 4818637-4 (Version None)
Quarter: 2005Q4

REPORT INFORMATION
  Report Type: 
  Country: None (occurrence: None)
  Receive Date: 20051101
  Receipt Date: 20051018
  Transmission Date: 20060501
  Serious: Yes (Other)
  Sender: FDA-Public Use
  Company Number: 2005094516

PATIENT
  Age: 63 Year
  Sex: Female
  Weight: 63.5036 kg

DRUGS (4)
  1. ARTHROTEC [Suspect]
     Indication: ARTHRITIS
     Dosage: 150 MG (75 MG 2 IN 1 D)
     Dates: start: 20050619, end: 20050620
  2. NITRO-SPRAY (ISOSORBIDE DINITRATE) [Concomitant]
  3. BENICAR [Concomitant]
  4. TOPROL-XL [Concomitant]

REACTIONS (5)
  - CHEST PAIN [None]
  - DYSPNOEA [None]
  - OESOPHAGEAL SPASM [None]
  - PAIN IN EXTREMITY [None]
  - VOMITING [None]
